FAERS Safety Report 10180274 (Version 2)
Quarter: 2014Q3

REPORT INFORMATION
  Report Type: Spontaneous
  Country: IT (occurrence: None)
  Receive Date: 20140515
  Receipt Date: 20140725
  Transmission Date: 20150326
  Serious: Yes (Hospitalization)
  Sender: FDA-Public Use
  Company Number: AUR-APL-2014-05582

PATIENT
  Age: 68 Year
  Sex: Female

DRUGS (5)
  1. TOLEP (OXCARBAZEPINE) [Suspect]
     Active Substance: OXCARBAZEPINE
     Indication: PRODUCT USED FOR UNKNOWN INDICATION
     Route: 048
     Dates: start: 20140428, end: 20140428
  2. TAVOR [Suspect]
     Active Substance: LORAZEPAM
     Indication: PRODUCT USED FOR UNKNOWN INDICATION
     Dosage: 1 MG TOTAL, ORAL
     Route: 048
     Dates: start: 20140428, end: 20140428
  3. MIRTAZAPINA [Suspect]
     Active Substance: MIRTAZAPINE
     Indication: PRODUCT USED FOR UNKNOWN INDICATION
     Dosage: 30 MG, TOTAL, ORAL
     Route: 048
     Dates: start: 20140428, end: 20140428
  4. FELISON [Concomitant]
     Active Substance: FLURAZEPAM MONOHYDROCHLORIDE
  5. MIRAPEXIN [Concomitant]
     Active Substance: PRAMIPEXOLE

REACTIONS (3)
  - Sopor [None]
  - Incorrect dose administered [None]
  - Drug administration error [None]

NARRATIVE: CASE EVENT DATE: 20140428
